FAERS Safety Report 8207571-8 (Version None)
Quarter: 2012Q1

REPORT INFORMATION
  Report Type: 
  Country: None (occurrence: None)
  Receive Date: 20120314
  Receipt Date: 20120302
  Transmission Date: 20120608
  Serious: Yes (Hospitalization)
  Sender: FDA-Public Use
  Company Number: KR-BAYER-2011-012457

PATIENT
  Age: 48 Year
  Sex: Male
  Weight: 54.6 kg

DRUGS (107)
  1. SORAFENIB (RAF KINASE INHIBITOR) [Suspect]
     Dosage: 400 MG, BID
     Dates: start: 20110215, end: 20110228
  2. SORAFENIB (RAF KINASE INHIBITOR) [Suspect]
     Dosage: 400 MG, QD
     Route: 048
     Dates: start: 20110301, end: 20110302
  3. MEGESTROL ACETATE [Concomitant]
     Dosage: 20 ML, QD
     Route: 048
     Dates: start: 20110207
  4. MUTERAN [Concomitant]
     Dosage: 200 MG, TID
     Route: 048
     Dates: start: 20110207, end: 20110313
  5. HEPATAMINE [Concomitant]
     Indication: DECREASED APPETITE
     Dosage: 500 ML, QOD
     Route: 042
     Dates: start: 20101217, end: 20101231
  6. HEPATAMINE [Concomitant]
     Dosage: 500 ML, QD
     Route: 042
     Dates: start: 20110503, end: 20110503
  7. LASIX [Concomitant]
     Dosage: 1 ML, BID
     Dates: start: 20110503, end: 20110504
  8. POFOL [Concomitant]
     Indication: COMPUTERISED TOMOGRAM
     Dosage: 80 MG, QD
     Dates: start: 20110214, end: 20110214
  9. RED BLOOD CELLS [Concomitant]
     Indication: ANAEMIA
     Dosage: 400 ML, BID
     Route: 042
     Dates: start: 20110213, end: 20110213
  10. RED BLOOD CELLS [Concomitant]
     Dosage: 400 ML, BID
     Route: 042
     Dates: start: 20110511, end: 20110511
  11. NASONEX [Concomitant]
     Indication: RHINITIS
     Dosage: UNK UNK, PRN
     Route: 045
  12. Q-ROKEL [Concomitant]
     Indication: ANXIETY
     Dosage: 25 MG, QD
     Route: 048
     Dates: start: 20110425, end: 20110425
  13. LACTITOL [Concomitant]
     Dosage: 20 G, BID
     Route: 048
     Dates: start: 20110429
  14. TORSEMIDE [Concomitant]
     Indication: OEDEMA
     Dosage: 5 MG, BID
     Route: 048
     Dates: start: 20110503, end: 20110510
  15. TORSEMIDE [Concomitant]
     Dosage: 10 MG, QD
     Dates: start: 20110511
  16. BANAN [Concomitant]
     Indication: ACUTE SINUSITIS
     Dosage: 200 MG, QD
     Route: 048
     Dates: start: 20110503, end: 20110503
  17. MEK INHIBITOR (DIHYDROXYPROP-DIFLU-METHOXYPHEN-CYCLOPROPA-SULFAMI) [Suspect]
     Dosage: 30 MG, BID
     Route: 048
     Dates: start: 20110517
  18. DURAGESIC-100 [Concomitant]
     Dosage: 25 ?G, Q72HR
     Dates: start: 20110514
  19. BIPHENYL DICARBOXYLATE [Concomitant]
     Indication: HEPATITIS
     Dosage: 12.5 MG, TID
     Route: 048
     Dates: start: 20101214, end: 20110205
  20. BIPHENYL DICARBOXYLATE [Concomitant]
     Dosage: 12.5 MG, TID
     Route: 048
     Dates: start: 20110207
  21. LEGALON [Concomitant]
     Dosage: 140 MG, TID
     Route: 048
     Dates: start: 20110207
  22. MUTERAN [Concomitant]
     Indication: PRODUCTIVE COUGH
     Dosage: 200 MG, TID
     Route: 048
     Dates: start: 20101214, end: 20110205
  23. OXYCODONE HCL [Concomitant]
     Dosage: 10 MG, BID
     Route: 048
     Dates: start: 20101227
  24. ADALAT [Concomitant]
     Dosage: 30 MG, QD
     Dates: start: 20110522, end: 20110522
  25. ZOLPIDEM [Concomitant]
     Indication: PROPHYLAXIS
     Dosage: 12.5 MG, QD
     Route: 048
     Dates: start: 20110124, end: 20110205
  26. ZOLPIDEM [Concomitant]
     Dosage: 12.5 MG, QD
     Route: 048
     Dates: start: 20110207
  27. SEROQUEL [Concomitant]
     Indication: ANXIETY
     Dosage: 50 MG, QD
     Route: 048
     Dates: start: 20110424, end: 20110424
  28. MEK INHIBITOR (DIHYDROXYPROP-DIFLU-METHOXYPHEN-CYCLOPROPA-SULFAMI) [Suspect]
     Indication: HEPATIC NEOPLASM MALIGNANT
     Dosage: 50 MG, BID
     Route: 048
     Dates: start: 20110110, end: 20110130
  29. LEGALON [Concomitant]
     Indication: HEPATITIS
     Dosage: 140 MG, TID
     Route: 048
     Dates: start: 20101214, end: 20110205
  30. ACTIQ [Concomitant]
     Dosage: 0.8 MG, QID
     Route: 048
     Dates: start: 20101223
  31. ULTRAVIST 150 [Concomitant]
     Indication: COMPUTERISED TOMOGRAM
     Dosage: 140 ML, QD
     Route: 042
     Dates: start: 20110105, end: 20110105
  32. LASIX [Concomitant]
     Indication: OEDEMA
     Dosage: 20 MG, BID
     Route: 048
     Dates: start: 20110131, end: 20110205
  33. LASIX [Concomitant]
     Dosage: 10 MG, BID
     Dates: start: 20110511, end: 20110511
  34. METOCLOPRAMIDE HCL [Concomitant]
     Indication: VOMITING
     Dosage: 10 MG, QD
     Route: 042
     Dates: start: 20110409, end: 20110416
  35. BANAN [Concomitant]
     Dosage: 200 MG, BID
     Dates: start: 20110504, end: 20110506
  36. REMICUT [Concomitant]
     Indication: ACUTE SINUSITIS
     Dosage: 1 MG, QD
     Route: 048
     Dates: start: 20110503, end: 20110503
  37. AMPICILLIN SODIUM/SULBACTAM SODIUM [Concomitant]
     Indication: ACUTE SINUSITIS
     Dosage: 3 G, QID
     Route: 042
     Dates: start: 20110507, end: 20110508
  38. MEK INHIBITOR (DIHYDROXYPROP-DIFLU-METHOXYPHEN-CYCLOPROPA-SULFAMI) [Suspect]
     Dosage: 50 MG, BID
     Dates: start: 20110215, end: 20110228
  39. MEK INHIBITOR (DIHYDROXYPROP-DIFLU-METHOXYPHEN-CYCLOPROPA-SULFAMI) [Suspect]
     Dosage: 50 MG, QD
     Route: 048
     Dates: start: 20110301, end: 20110302
  40. MEK INHIBITOR (DIHYDROXYPROP-DIFLU-METHOXYPHEN-CYCLOPROPA-SULFAMI) [Suspect]
     Dosage: 50 MG, BID
     Route: 048
     Dates: start: 20110303, end: 20110419
  41. SORAFENIB (RAF KINASE INHIBITOR) [Suspect]
     Indication: HEPATIC NEOPLASM MALIGNANT
     Dosage: 200/400 MG, QD
     Route: 048
     Dates: start: 20110110, end: 20110131
  42. SORAFENIB (RAF KINASE INHIBITOR) [Suspect]
     Dosage: 600 MG (200 MG/400 MG), QD
     Route: 048
     Dates: start: 20110205, end: 20110205
  43. SORAFENIB (RAF KINASE INHIBITOR) [Suspect]
     Dosage: 400 MG, QD
     Route: 048
     Dates: start: 20110420, end: 20110420
  44. DURAGESIC-100 [Concomitant]
     Indication: ABDOMINAL PAIN
     Dosage: 25 ?G, BIW
     Route: 062
     Dates: start: 20101214, end: 20110101
  45. LIVACT [AMINO ACIDS NOS] [Concomitant]
     Indication: PROPHYLAXIS
     Dosage: 4.15 G, TID
     Route: 048
     Dates: start: 20101220, end: 20110205
  46. ADALAT [Concomitant]
     Dosage: 30 MG, BID
     Route: 048
     Dates: start: 20110114, end: 20110205
  47. ADALAT [Concomitant]
     Dosage: 30 MG, BID
     Route: 048
     Dates: start: 20110207
  48. ALDACTONE [Concomitant]
     Indication: OEDEMA
     Dosage: 1 DF, BID
     Route: 048
     Dates: start: 20110131, end: 20110205
  49. ALDACTONE [Concomitant]
     Dosage: 50 MG, BID
     Dates: start: 20110511
  50. TRAMADOL HCL [Concomitant]
     Dosage: 50 MG, TID
     Route: 042
     Dates: start: 20110406, end: 20110425
  51. METOCLOPRAMIDE HCL [Concomitant]
     Dosage: 10 MG, TID
     Route: 042
     Dates: start: 20110425
  52. ERDOSTEINE [Concomitant]
     Dosage: 300 MG, TID
     Route: 048
     Dates: start: 20110520
  53. TORSEMIDE [Concomitant]
     Dosage: 5 MG, QD
     Dates: start: 20110511, end: 20110518
  54. K CONTIN [Concomitant]
     Indication: PROPHYLAXIS
     Dosage: 600 MG, TID
     Route: 048
     Dates: start: 20110504, end: 20110519
  55. SPANTOL [Concomitant]
     Indication: NAUSEA
     Dosage: 80 MG, QD
     Route: 048
     Dates: start: 20110517, end: 20110517
  56. NORVASC [Concomitant]
     Indication: PROPHYLAXIS
     Dosage: 5 MG, QD
     Route: 048
     Dates: start: 20110523
  57. SILYMARIN [Concomitant]
     Dosage: 500 ML, QD
     Route: 042
     Dates: start: 20110102, end: 20110102
  58. LASIX [Concomitant]
     Dosage: 20 MG, BID
     Route: 048
     Dates: start: 20110207
  59. ALLEGRA [Concomitant]
     Indication: PRURITUS
     Dosage: 180 MG, QD
     Dates: start: 20110215, end: 20110313
  60. UCERAX [Concomitant]
     Indication: PRURITUS
     Dosage: 25 MG, TID
     Dates: start: 20110201, end: 20110313
  61. TRAMADOL HCL [Concomitant]
     Indication: ABDOMINAL PAIN
     Dosage: 50 MG, QD
     Route: 042
     Dates: start: 20110405, end: 20110405
  62. SEROQUEL [Concomitant]
     Dosage: 50 MG, QD
     Route: 048
     Dates: start: 20110503
  63. TANTUM [Concomitant]
     Dosage: UNK UNK, PRN
     Dates: start: 20110424
  64. AMPICILLIN SODIUM/SULBACTAM SODIUM [Concomitant]
     Dosage: 3 G, QD
     Route: 048
     Dates: start: 20110509, end: 20110509
  65. KYTRIL [Concomitant]
     Indication: NAUSEA
     Dosage: 1 MG, QD
     Route: 048
     Dates: start: 20110517, end: 20110524
  66. SORAFENIB (RAF KINASE INHIBITOR) [Suspect]
     Dosage: 400 MG, BID
     Route: 048
     Dates: start: 20110201, end: 20110204
  67. SORAFENIB (RAF KINASE INHIBITOR) [Suspect]
     Dosage: 400 MG, QD
     Route: 048
     Dates: start: 20110214, end: 20110214
  68. SORAFENIB (RAF KINASE INHIBITOR) [Suspect]
     Dosage: 400 MG, BID
     Route: 048
     Dates: start: 20110303, end: 20110419
  69. OXYCODONE HCL [Concomitant]
     Indication: ABDOMINAL PAIN
     Dosage: 10 MG, QD
     Route: 048
     Dates: start: 20101226, end: 20101226
  70. FREAMINE [Concomitant]
     Indication: DECREASED APPETITE
     Dosage: 500 ML, QOD
     Route: 042
     Dates: start: 20110103, end: 20110107
  71. PANTOPRAZOLE SODIUM [Concomitant]
     Indication: GASTRIC ULCER
     Dosage: 20 MG, QD
     Route: 048
     Dates: start: 20110314
  72. ALBUMIN (HUMAN) [Concomitant]
     Indication: OEDEMA
     Dosage: 100 ML, QD
     Route: 042
     Dates: start: 20110209, end: 20110209
  73. ERDOSTEINE [Concomitant]
     Dosage: 300 MG, TID
     Route: 048
     Dates: start: 20110429
  74. DEPAS [Concomitant]
     Indication: ANXIETY
     Dosage: 0.5 MG, QD
     Route: 048
     Dates: start: 20110507
  75. MEK INHIBITOR (DIHYDROXYPROP-DIFLU-METHOXYPHEN-CYCLOPROPA-SULFAMI) [Suspect]
     Dosage: 50 MG, QD
     Route: 048
     Dates: start: 20110214, end: 20110214
  76. MEK INHIBITOR (DIHYDROXYPROP-DIFLU-METHOXYPHEN-CYCLOPROPA-SULFAMI) [Suspect]
     Dosage: 30 MG, QD
     Route: 048
     Dates: start: 20110516, end: 20110516
  77. SORAFENIB (RAF KINASE INHIBITOR) [Suspect]
     Dosage: 400 MG, QD
     Route: 048
     Dates: start: 20110516
  78. MEGESTROL ACETATE [Concomitant]
     Indication: DECREASED APPETITE
     Dosage: 20 ML, QD
     Route: 048
     Dates: start: 20101219, end: 20110205
  79. MEGESTROL ACETATE [Concomitant]
     Dosage: 20 ML, QD
     Route: 048
     Dates: start: 20110517
  80. DURAGESIC-100 [Concomitant]
     Dosage: 12.5 ?G, BIW
     Route: 062
     Dates: start: 20110124
  81. ACTIQ [Concomitant]
     Indication: ABDOMINAL PAIN
     Dosage: 0.6 MG, TID
     Route: 048
     Dates: start: 20101203, end: 20101222
  82. CEFOTAXIME [Concomitant]
     Indication: PROPHYLAXIS
     Dosage: 2 G, TID
     Route: 042
     Dates: start: 20101216, end: 20110105
  83. LIPID EMULSION [Concomitant]
     Indication: DECREASED APPETITE
     Dosage: 500 ML, QOD
     Route: 042
     Dates: start: 20110104, end: 20110106
  84. ULTRAVIST 150 [Concomitant]
     Dosage: 140 ML, QD
     Route: 042
     Dates: start: 20110511, end: 20110511
  85. DIOVAN [Concomitant]
     Dosage: 40 MG, QD
     Route: 048
     Dates: start: 20110207
  86. ALDACTONE [Concomitant]
     Dosage: 1 DF, BID
     Route: 048
     Dates: start: 20110207
  87. ALBUMIN (HUMAN) [Concomitant]
     Dosage: 100 ML, QD
     Route: 042
     Dates: start: 20110503, end: 20110504
  88. XANAX [Concomitant]
     Indication: ANXIETY
     Dosage: 0.25 MG, QD
     Route: 048
     Dates: start: 20110427, end: 20110427
  89. ERDOSTEINE [Concomitant]
     Indication: PRODUCTIVE COUGH
     Dosage: 300 MG, QD
     Route: 048
     Dates: start: 20110428, end: 20110428
  90. DURAGESIC-100 [Concomitant]
     Dosage: 25 ?G, BIW
     Route: 062
     Dates: start: 20110105, end: 20110123
  91. ACTIQ [Concomitant]
     Dosage: 0.8 MG, QID
     Route: 048
     Dates: start: 20110302
  92. LIVACT [AMINO ACIDS NOS] [Concomitant]
     Dosage: 4.15 G, TID
     Route: 048
     Dates: start: 20110207
  93. SILYMARIN [Concomitant]
     Indication: DECREASED APPETITE
     Dosage: 500 ML, QOD
     Route: 042
     Dates: start: 20101212, end: 20110101
  94. HEPATAMINE [Concomitant]
     Dosage: 500 ML, QD
     Route: 042
     Dates: start: 20110207, end: 20110207
  95. MORPHINE SULFATE [Concomitant]
     Indication: ABDOMINAL PAIN
     Dosage: 5 ML, QD
     Route: 042
     Dates: start: 20101230, end: 20101230
  96. MORPHINE SULFATE [Concomitant]
     Dosage: 5 ML, QD
     Route: 042
     Dates: start: 20110101, end: 20110102
  97. ADALAT [Concomitant]
     Indication: HYPERTENSION
     Dosage: 30 MG, QD
     Route: 048
     Dates: start: 20110113, end: 20110113
  98. DIOVAN [Concomitant]
     Indication: HYPERTENSION
     Dosage: 40 MG, QD
     Route: 048
     Dates: start: 20110113, end: 20110205
  99. ALBIS [Concomitant]
     Indication: HEPATITIS
     Dosage: 1 T, BID
     Route: 048
     Dates: start: 20110209, end: 20110209
  100. DESOWEN [Concomitant]
     Indication: PRURITUS
     Dosage: UNK UNK, PRN
     Route: 061
     Dates: start: 20110215, end: 20110424
  101. BARACLUDE [Concomitant]
     Indication: HEPATITIS B
     Dosage: 0.5 MG, QD
     Route: 048
     Dates: start: 20110427
  102. LACTITOL [Concomitant]
     Indication: CONSTIPATION
     Dosage: 20 G, QD
     Route: 048
     Dates: start: 20110428, end: 20110428
  103. REMERON [Concomitant]
     Indication: ANXIETY
     Dosage: 7.5 MG, QD
     Route: 048
     Dates: start: 20110430, end: 20110430
  104. TRIAZOLAM [Concomitant]
     Indication: ANXIETY
     Dosage: 0.25 MG, QD
     Route: 048
     Dates: start: 20110502, end: 20110502
  105. BANAN [Concomitant]
     Dosage: 200 MG, BID
     Dates: start: 20110509
  106. REMICUT [Concomitant]
     Dosage: 1 MG, BID
     Dates: start: 20110504
  107. SPANTOL [Concomitant]
     Dosage: 80 MG, TID
     Route: 048
     Dates: start: 20110518

REACTIONS (2)
  - DIARRHOEA [None]
  - MYOPATHY [None]
